FAERS Safety Report 9536498 (Version 6)
Quarter: 2014Q2

REPORT INFORMATION
  Report Type: Report from Study
  Country: US (occurrence: US)
  Receive Date: 20130919
  Receipt Date: 20140418
  Transmission Date: 20141212
  Serious: Yes (Death, Life-Threatening, Hospitalization, Other)
  Sender: FDA-Public Use
  Company Number: US-ASTELLAS-2013US007776

PATIENT
  Age: 48 Year
  Sex: Male

DRUGS (16)
  1. ASKP1240 [Suspect]
     Indication: RENAL TRANSPLANT
     Route: 042
     Dates: start: 20130709, end: 20130709
  2. TACROLIMUS [Suspect]
     Indication: RENAL TRANSPLANT
     Dosage: 0.5 MG, TWICE DAILY
     Route: 048
     Dates: start: 20130709, end: 20130712
  3. TACROLIMUS [Suspect]
     Dosage: 0.5 MG, TWICE DAILY
     Route: 048
     Dates: end: 20130812
  4. BASILIXIMAB [Suspect]
     Indication: RENAL TRANSPLANT
     Route: 042
     Dates: start: 20130709, end: 20130709
  5. THYMOGLOBULIN [Suspect]
     Indication: TRANSPLANT REJECTION
     Dosage: 150 MG, TIMES FOUR DOSES
     Route: 042
     Dates: start: 20130712, end: 20130714
  6. SOLUMEDROL [Suspect]
     Indication: PRODUCT USED FOR UNKNOWN INDICATION
     Route: 065
  7. PREDNISONE [Suspect]
     Indication: PRODUCT USED FOR UNKNOWN INDICATION
     Route: 048
     Dates: start: 20130714
  8. MYFORTIC [Suspect]
     Indication: PRODUCT USED FOR UNKNOWN INDICATION
     Route: 048
     Dates: start: 20130717
  9. MORPHINE [Suspect]
     Indication: PAIN
     Route: 042
     Dates: start: 20130709
  10. HEPARIN [Suspect]
     Indication: HEART VALVE REPLACEMENT
     Route: 041
     Dates: start: 20130710, end: 20130822
  11. HYDROCODONE [Suspect]
     Indication: PRODUCT USED FOR UNKNOWN INDICATION
     Route: 065
  12. DEMEROL [Concomitant]
     Indication: PAIN
     Route: 042
     Dates: start: 20130709
  13. CORTICOSTEROID NOS [Concomitant]
     Indication: RENAL TRANSPLANT
     Route: 065
     Dates: start: 20130710, end: 20130822
  14. BUMEX [Concomitant]
     Indication: PRODUCT USED FOR UNKNOWN INDICATION
     Route: 048
     Dates: start: 20130709
  15. HUMULIN R [Concomitant]
     Indication: PRODUCT USED FOR UNKNOWN INDICATION
     Dosage: Q4HOURS
     Route: 058
     Dates: start: 20130710
  16. PANTOPRAZOLE [Concomitant]
     Indication: PRODUCT USED FOR UNKNOWN INDICATION
     Route: 042
     Dates: start: 20130710

REACTIONS (17)
  - Intestinal obstruction [Not Recovered/Not Resolved]
  - Blood bilirubin increased [Not Recovered/Not Resolved]
  - Renal failure acute [Not Recovered/Not Resolved]
  - Renal tubular necrosis [Not Recovered/Not Resolved]
  - Transplant failure [Recovered/Resolved with Sequelae]
  - Peritonitis [Not Recovered/Not Resolved]
  - Appendicitis [Recovered/Resolved]
  - Septic shock [Recovered/Resolved]
  - Sepsis [Fatal]
  - Liver function test abnormal [Not Recovered/Not Resolved]
  - Intra-abdominal haemorrhage [Not Recovered/Not Resolved]
  - Cholelithiasis [Recovered/Resolved]
  - Intestinal ischaemia [Not Recovered/Not Resolved]
  - Adverse drug reaction [Recovering/Resolving]
  - Tachypnoea [Recovering/Resolving]
  - Tachycardia [Recovering/Resolving]
  - Vomiting [Recovering/Resolving]
